FAERS Safety Report 15284272 (Version 1)
Quarter: 2018Q3

REPORT INFORMATION
  Report Type: Spontaneous
  Country: US (occurrence: US)
  Receive Date: 20180801
  Receipt Date: 20180801
  Transmission Date: 20181010
  Serious: Yes (Other)
  Sender: FDA-Public Use
  Company Number: None

PATIENT
  Age: 56 Year
  Sex: Female
  Weight: 115.67 kg

DRUGS (1)
  1. CLONAZEPAM 0.5MG [Suspect]
     Active Substance: CLONAZEPAM
     Indication: ANXIETY DISORDER
     Route: 048
     Dates: start: 201806

REACTIONS (15)
  - Product substitution issue [None]
  - Drug ineffective [None]
  - Insomnia [None]
  - Asthenia [None]
  - Abdominal discomfort [None]
  - Pain [None]
  - Burning sensation [None]
  - Rash [None]
  - Paraesthesia [None]
  - Hypoaesthesia [None]
  - Muscular weakness [None]
  - Condition aggravated [None]
  - Mobility decreased [None]
  - Anxiety [None]
  - Neck pain [None]

NARRATIVE: CASE EVENT DATE: 201806
